FAERS Safety Report 5008526-7 (Version None)
Quarter: 2006Q2

REPORT INFORMATION
  Report Type: 
  Country: None (occurrence: None)
  Receive Date: 20060523
  Receipt Date: 20060515
  Transmission Date: 20061013
  Serious: Yes (Other)
  Sender: FDA-Public Use
  Company Number: PHFR2006GB01722

PATIENT
  Sex: Male

DRUGS (9)
  1. NEORAL [Suspect]
     Indication: GANGRENE
     Dosage: 5 CAPSULES/DAY
     Route: 048
  2. ACETAMINOPHEN W/ CODEINE [Concomitant]
     Indication: PAIN IN EXTREMITY
     Route: 065
  3. PARACETAMOL [Concomitant]
     Indication: PAIN IN EXTREMITY
     Route: 065
  4. ORAMORPH SR [Concomitant]
     Indication: PAIN IN EXTREMITY
     Route: 065
  5. PENTASA [Concomitant]
     Dosage: 500 MG, 8QD
     Route: 065
  6. AMITRIPTYLINE HCL [Concomitant]
     Dosage: 5 / DAY
     Route: 065
  7. ATENOLOL [Concomitant]
     Dosage: 25 MG, QD
     Route: 065
  8. LOSARTAN POTASSIUM [Concomitant]
     Route: 065
  9. GRAPEFRUIT JUICE [Concomitant]
     Route: 048

REACTIONS (3)
  - EPISTAXIS [None]
  - GASTRIC HAEMORRHAGE [None]
  - HEADACHE [None]
